FAERS Safety Report 24746422 (Version 1)
Quarter: 2024Q4

REPORT INFORMATION
  Report Type: Spontaneous
  Country: US (occurrence: US)
  Receive Date: 20241218
  Receipt Date: 20241218
  Transmission Date: 20250115
  Serious: Yes (Other)
  Sender: AMGEN
  Company Number: US-AMGEN-USASP2024244338

PATIENT
  Age: 72 Year
  Sex: Female

DRUGS (1)
  1. REPATHA [Suspect]
     Active Substance: EVOLOCUMAB
     Indication: Blood cholesterol abnormal
     Dosage: UNK
     Route: 065

REACTIONS (5)
  - Immunodeficiency [Not Recovered/Not Resolved]
  - Pneumonia [Not Recovered/Not Resolved]
  - Aspartate aminotransferase increased [Not Recovered/Not Resolved]
  - Nasopharyngitis [Not Recovered/Not Resolved]
  - Influenza like illness [Not Recovered/Not Resolved]

NARRATIVE: CASE EVENT DATE: 20240101
